FAERS Safety Report 5065674-3 (Version None)
Quarter: 2006Q3

REPORT INFORMATION
  Report Type: 
  Country: None (occurrence: None)
  Receive Date: 20060731
  Receipt Date: 20060626
  Transmission Date: 20061208
  Serious: Yes (Hospitalization)
  Sender: FDA-Public Use
  Company Number: 2006SE03567

PATIENT
  Age: 20310 Day
  Sex: Male

DRUGS (6)
  1. BLOPRESS [Suspect]
     Indication: HYPERTENSION
     Route: 048
     Dates: start: 20020601, end: 20030701
  2. BLOPRESS [Suspect]
     Route: 048
     Dates: start: 20060427, end: 20060524
  3. FOSAMAC(ALENDRONATE SODIUM HYDRATE) [Concomitant]
     Indication: OSTEOPOROSIS
     Route: 048
     Dates: start: 20060427, end: 20060518
  4. PENTASA [Concomitant]
     Indication: COLITIS ULCERATIVE
     Route: 048
     Dates: start: 19750101
  5. BIOFERMIN [Concomitant]
     Indication: COLITIS ULCERATIVE
     Route: 048
  6. BECLOMETHASONE DIPROPIONATE [Concomitant]
     Indication: COLITIS ULCERATIVE
     Route: 054
     Dates: start: 20020628

REACTIONS (9)
  - ALANINE AMINOTRANSFERASE INCREASED [None]
  - ASPARTATE AMINOTRANSFERASE INCREASED [None]
  - BLOOD ALKALINE PHOSPHATASE INCREASED [None]
  - GAMMA-GLUTAMYLTRANSFERASE INCREASED [None]
  - HEADACHE [None]
  - HEPATIC FUNCTION ABNORMAL [None]
  - INFLAMMATION [None]
  - OSTEOPOROSIS [None]
  - PYREXIA [None]
